FAERS Safety Report 8241987-9 (Version None)
Quarter: 2012Q1

REPORT INFORMATION
  Report Type: 
  Country: None (occurrence: None)
  Receive Date: 20120329
  Receipt Date: 20120323
  Transmission Date: 20120608
  Serious: No
  Sender: FDA-Public Use
  Company Number: US-BIOGENIDEC-2011BI009845

PATIENT
  Age: 47 Year
  Sex: Female

DRUGS (1)
  1. TYSABRI [Suspect]
     Indication: MULTIPLE SCLEROSIS
     Route: 042
     Dates: start: 20110207, end: 20110309

REACTIONS (22)
  - EYE IRRITATION [None]
  - RASH [None]
  - NASAL CONGESTION [None]
  - CHILLS [None]
  - ANXIETY [None]
  - HEART RATE INCREASED [None]
  - HEADACHE [None]
  - MALAISE [None]
  - ABDOMINAL PAIN LOWER [None]
  - DIARRHOEA [None]
  - ORAL DISCOMFORT [None]
  - TREMOR [None]
  - NAUSEA [None]
  - ASTHENIA [None]
  - RHINORRHOEA [None]
  - MUSCULAR WEAKNESS [None]
  - LACRIMATION INCREASED [None]
  - PARAESTHESIA [None]
  - PALPITATIONS [None]
  - BALANCE DISORDER [None]
  - FEELING ABNORMAL [None]
  - DIZZINESS [None]
